FAERS Safety Report 7638300-4 (Version None)
Quarter: 2011Q3

REPORT INFORMATION
  Report Type: 
  Country: None (occurrence: None)
  Receive Date: 20110727
  Receipt Date: 20110727
  Transmission Date: 20111222
  Serious: Yes (Hospitalization)
  Sender: FDA-Public Use
  Company Number: None

PATIENT
  Age: 51 Year
  Sex: Female
  Weight: 720.75 kg

DRUGS (2)
  1. DECITABINE [Suspect]
     Indication: ACUTE MYELOID LEUKAEMIA RECURRENT
     Dosage: 36MG
     Route: 042
     Dates: start: 20110613, end: 20110715
  2. RAPAMYCIN [Concomitant]
     Dosage: 4MG
     Route: 048
     Dates: start: 20110618, end: 20110704

REACTIONS (6)
  - FEBRILE NEUTROPENIA [None]
  - ASTHENIA [None]
  - NAUSEA [None]
  - MUCOSAL INFLAMMATION [None]
  - BLOOD PRESSURE DECREASED [None]
  - VOMITING [None]
